FAERS Safety Report 8617115-4 (Version None)
Quarter: 2012Q3

REPORT INFORMATION
  Report Type: 
  Country: None (occurrence: None)
  Receive Date: 20120823
  Receipt Date: 20120820
  Transmission Date: 20120928
  Serious: No
  Sender: FDA-Public Use
  Company Number: US-PFIZER INC-2012203805

PATIENT
  Age: 58 Year
  Sex: Female

DRUGS (3)
  1. PABA TAB [Suspect]
     Dosage: UNK
  2. CORTISONE ACETATE [Suspect]
     Dosage: UNK
  3. LYRICA [Suspect]
     Dosage: UNK

REACTIONS (1)
  - DRUG HYPERSENSITIVITY [None]
